FAERS Safety Report 16629361 (Version 1)
Quarter: 2019Q3

REPORT INFORMATION
  Report Type: Spontaneous
  Country: IT (occurrence: IT)
  Receive Date: 20190725
  Receipt Date: 20190725
  Transmission Date: 20191004
  Serious: Yes (Other)
  Sender: FDA-Public Use
  Company Number: IT-TEVA-2019-IT-1082143

PATIENT
  Age: 77 Year
  Sex: Male

DRUGS (3)
  1. DOXAZOSIN [Suspect]
     Active Substance: DOXAZOSIN MESYLATE
     Indication: HYPERTENSION
     Dosage: 1 DOSAGE FORM PER 1 DAY
     Route: 048
     Dates: start: 20190101, end: 20190705
  2. GIANT 40 MG/10 MG COMPRESSE RIVESTITE CON FILM [Suspect]
     Active Substance: AMLODIPINE BESYLATE\OLMESARTAN MEDOXOMIL
     Indication: HYPERTENSION
     Dosage: 1 DOSAGE FORM PER 1 DAY
     Route: 048
     Dates: start: 20190101, end: 20190705
  3. BISOPROLOL FUMARATE. [Suspect]
     Active Substance: BISOPROLOL FUMARATE
     Indication: HYPERTENSION
     Dosage: 1.25 MILLIGRAM PER 1 DAY
     Route: 048
     Dates: start: 20190101, end: 20190705

REACTIONS (5)
  - Contusion [Recovering/Resolving]
  - Orthostatic hypotension [Recovering/Resolving]
  - Injury [Recovering/Resolving]
  - Syncope [Recovering/Resolving]
  - Loss of consciousness [Recovering/Resolving]

NARRATIVE: CASE EVENT DATE: 20190705
